FAERS Safety Report 10065111 (Version 1)
Quarter: 2014Q1

REPORT INFORMATION
  Report Type: Spontaneous
  Country: US (occurrence: None)
  Receive Date: 20140328
  Receipt Date: 20140328
  Transmission Date: 20141002
  Serious: No
  Sender: FDA-Public Use
  Company Number: CABO-13003737

PATIENT
  Age: 64 Year
  Sex: Female
  Weight: 65 kg

DRUGS (2)
  1. COMETRIQ [Suspect]
     Indication: THYROID CANCER
     Route: 048
     Dates: start: 20131127
  2. ZYRTEC (CETIRIZINE HYDROCHLORIDE) [Concomitant]

REACTIONS (14)
  - Neck pain [None]
  - Back pain [None]
  - Saliva altered [None]
  - Flatulence [None]
  - Anosmia [None]
  - Ageusia [None]
  - Throat irritation [None]
  - Constipation [None]
  - Dysgeusia [None]
  - Nausea [None]
  - Oral pain [None]
  - Palmar-plantar erythrodysaesthesia syndrome [None]
  - Sinus headache [None]
  - Fatigue [None]
